FAERS Safety Report 6872590-0 (Version None)
Quarter: 2010Q3

REPORT INFORMATION
  Report Type: 
  Country: None (occurrence: None)
  Receive Date: 20100723
  Receipt Date: 20081008
  Transmission Date: 20110219
  Serious: No
  Sender: FDA-Public Use
  Company Number: US-PFIZER INC-2008085542

PATIENT
  Sex: Female
  Weight: 77.11 kg

DRUGS (1)
  1. CHANTIX [Suspect]
     Indication: SMOKING CESSATION THERAPY
     Dates: start: 20080929, end: 20081007

REACTIONS (4)
  - DRUG DOSE OMISSION [None]
  - FACIAL PAIN [None]
  - GINGIVAL PAIN [None]
  - PAIN IN JAW [None]
